FAERS Safety Report 5126851-6 (Version None)
Quarter: 2006Q4

REPORT INFORMATION
  Report Type: 
  Country: None (occurrence: None)
  Receive Date: 20061011
  Receipt Date: 20061011
  Transmission Date: 20070319
  Serious: Yes (Disabling)
  Sender: FDA-Public Use
  Company Number: None

PATIENT
  Sex: Female
  Weight: 68.7 kg

DRUGS (2)
  1. ZOSYN [Suspect]
     Indication: GASTROINTESTINAL NECROSIS
     Dosage: 2.25 GRAM  Q8H  IV BOLUS
     Route: 040
     Dates: start: 20060929, end: 20061001
  2. ENOXAPARIN SODIUM [Suspect]
     Indication: THROMBOSIS PROPHYLAXIS
     Dosage: 40 MG   DAILY   SQ
     Route: 058
     Dates: start: 20060928, end: 20060929

REACTIONS (1)
  - PLATELET COUNT DECREASED [None]
